FAERS Safety Report 20081964 (Version 1)
Quarter: 2021Q4

REPORT INFORMATION
  Report Type: Spontaneous
  Country: FR (occurrence: FR)
  Receive Date: 20211117
  Receipt Date: 20211117
  Transmission Date: 20220303
  Serious: Yes (Other)
  Sender: FDA-Public Use
  Company Number: None

PATIENT
  Age: 44 Year
  Sex: Male

DRUGS (7)
  1. CARBOPLATIN [Suspect]
     Active Substance: CARBOPLATIN
     Indication: Squamous cell carcinoma of the parotid gland
     Dosage: 2 CURES
     Route: 042
     Dates: start: 20210406, end: 20210429
  2. CISPLATIN [Suspect]
     Active Substance: CISPLATIN
     Indication: Squamous cell carcinoma of the parotid gland
     Dosage: 2 CURES
     Route: 042
     Dates: start: 20210216, end: 20210309
  3. DOCETAXEL [Suspect]
     Active Substance: DOCETAXEL
     Indication: Squamous cell carcinoma of the parotid gland
     Dosage: 2 CURES
     Route: 042
     Dates: start: 20210406, end: 20210429
  4. TOPALGIC                           /00599202/ [Concomitant]
     Dosage: UNK
  5. ERBITUX [Concomitant]
     Active Substance: CETUXIMAB
     Dosage: UNK
  6. DOLIPRANE [Concomitant]
     Active Substance: ACETAMINOPHEN
     Dosage: UNK
  7. DOXYCYCLINE [Concomitant]
     Active Substance: DOXYCYCLINE
     Dosage: UNK

REACTIONS (1)
  - Peripheral ischaemia [Recovering/Resolving]

NARRATIVE: CASE EVENT DATE: 20210429
